FAERS Safety Report 8182806-9 (Version None)
Quarter: 2012Q1

REPORT INFORMATION
  Report Type: 
  Country: None (occurrence: None)
  Receive Date: 20120305
  Receipt Date: 20120228
  Transmission Date: 20120608
  Serious: No
  Sender: FDA-Public Use
  Company Number: US-PFIZER INC-2012053601

PATIENT
  Sex: Female
  Weight: 70 kg

DRUGS (2)
  1. CYTOMEL [Suspect]
     Indication: BASEDOW'S DISEASE
     Dosage: UNK, 1X/DAY
     Route: 048
     Dates: start: 20070601
  2. CYTOMEL [Suspect]
     Dosage: UNK, AS NEEDED
     Route: 048
     Dates: start: 20120101

REACTIONS (4)
  - VIRAL INFECTION [None]
  - DYSPNOEA [None]
  - SLUGGISHNESS [None]
  - DRUG EFFECT DECREASED [None]
